FAERS Safety Report 5991259-8 (Version None)
Quarter: 2008Q4

REPORT INFORMATION
  Report Type: 
  Country: None (occurrence: None)
  Receive Date: 20081211
  Receipt Date: 20081201
  Transmission Date: 20090506
  Serious: Yes (Other)
  Sender: FDA-Public Use
  Company Number: BR-JNJFOC-20081201202

PATIENT
  Age: 60 Year
  Sex: Female
  Weight: 72 kg

DRUGS (5)
  1. IMOSEC [Suspect]
  2. IMOSEC [Suspect]
     Indication: DIARRHOEA
  3. HYDROCHLOROTHIAZIDE [Concomitant]
     Indication: DIURETIC THERAPY
  4. ENALAPRIL MALEATE [Concomitant]
     Indication: HYPERTENSION
  5. INSULIN [Concomitant]
     Indication: DIABETES MELLITUS
     Dosage: ^14 ML PER DAY^

REACTIONS (3)
  - ANOREXIA [None]
  - SOMNOLENCE [None]
  - VERTIGO [None]
